FAERS Safety Report 7877710-7 (Version None)
Quarter: 2011Q4

REPORT INFORMATION
  Report Type: 
  Country: None (occurrence: None)
  Receive Date: 20111031
  Receipt Date: 20111031
  Transmission Date: 20120403
  Serious: Yes (Other)
  Sender: FDA-Public Use
  Company Number: None

PATIENT
  Sex: Male
  Weight: 117.93 kg

DRUGS (1)
  1. METFORMIN HCL [Suspect]
     Indication: BLOOD GLUCOSE
     Dosage: 500MG
     Route: 048
     Dates: start: 20110901, end: 20111027

REACTIONS (5)
  - FATIGUE [None]
  - LACTIC ACIDOSIS [None]
  - FEELING ABNORMAL [None]
  - SOMNOLENCE [None]
  - RESPIRATORY RATE INCREASED [None]
